FAERS Safety Report 5530816-X (Version None)
Quarter: 2007Q4

REPORT INFORMATION
  Report Type: 
  Country: None (occurrence: None)
  Receive Date: 20071130
  Receipt Date: 20071127
  Transmission Date: 20080405
  Serious: Yes (Hospitalization)
  Sender: FDA-Public Use
  Company Number: GB-WYE-G00595507

PATIENT
  Sex: Female
  Weight: 53.5 kg

DRUGS (9)
  1. EFFEXOR XR [Suspect]
     Route: 048
     Dates: start: 20070910
  2. LEVOTHYROXINE SODIUM [Concomitant]
     Indication: HYPOTHYROIDISM
  3. PARACETAMOL [Concomitant]
     Route: 048
     Dates: start: 20070727
  4. BUSCOPAN [Concomitant]
     Indication: IRRITABLE BOWEL SYNDROME
     Route: 048
     Dates: start: 20070515
  5. LANTUS [Concomitant]
     Dosage: UNKNOWN
     Route: 058
     Dates: start: 20030519, end: 20031201
  6. LANTUS [Concomitant]
     Dosage: UNKNOWN
     Route: 058
     Dates: start: 20040326, end: 20040801
  7. LANTUS [Concomitant]
     Dosage: UNKNOWN
     Route: 058
     Dates: start: 20070514
  8. GABAPENTIN [Concomitant]
     Indication: TYPE 2 DIABETES MELLITUS
     Route: 048
     Dates: start: 20070622
  9. NOVORAPID [Concomitant]
     Indication: TYPE 2 DIABETES MELLITUS
     Dosage: UNKNOWN
     Route: 058
     Dates: start: 20060202

REACTIONS (1)
  - CATARACT OPERATION [None]
